FAERS Safety Report 7403334-1 (Version None)
Quarter: 2011Q2

REPORT INFORMATION
  Report Type: 
  Country: None (occurrence: None)
  Receive Date: 20110408
  Receipt Date: 20110330
  Transmission Date: 20111010
  Serious: Yes (Hospitalization)
  Sender: FDA-Public Use
  Company Number: JP-AMGEN-JPNCT2011012285

PATIENT
  Age: 69 Year
  Sex: Male
  Weight: 60 kg

DRUGS (7)
  1. FLUOROURACIL [Concomitant]
     Route: 041
     Dates: start: 20110126, end: 20110128
  2. PANITUMUMAB [Suspect]
     Indication: COLORECTAL CANCER METASTATIC
     Dosage: 360 MG, Q2WK
     Route: 041
     Dates: start: 20110126
  3. CAMPTOSAR [Concomitant]
     Indication: COLORECTAL CANCER
     Route: 041
     Dates: start: 20110126, end: 20110126
  4. ALOXI [Concomitant]
     Indication: VOMITING
     Route: 042
     Dates: start: 20110126, end: 20110126
  5. FLUOROURACIL [Concomitant]
     Indication: COLORECTAL CANCER
     Route: 040
     Dates: start: 20110126, end: 20110126
  6. CALCIUM LEVOFOLINATE [Concomitant]
     Indication: COLORECTAL CANCER
     Dosage: 225 MG, Q2WK
     Route: 041
     Dates: start: 20110126, end: 20110126
  7. CALCIUM LEVOFOLINATE [Concomitant]
     Route: 041
     Dates: start: 20110126, end: 20110126

REACTIONS (1)
  - BILE DUCT STONE [None]
